FAERS Safety Report 16628270 (Version 1)
Quarter: 2019Q3

REPORT INFORMATION
  Report Type: Spontaneous
  Country: US (occurrence: US)
  Receive Date: 20190724
  Receipt Date: 20190724
  Transmission Date: 20191004
  Serious: Yes (Life-Threatening, Hospitalization, Other)
  Sender: FDA-Public Use
  Company Number: None

PATIENT
  Age: 54 Year
  Sex: Male
  Weight: 96.75 kg

DRUGS (8)
  1. CPAP MACHINE [Concomitant]
  2. CHILDREN^S ASPIRINE [Concomitant]
  3. FLUOXETINE [Suspect]
     Active Substance: FLUOXETINE HYDROCHLORIDE
     Indication: DEPRESSION
     Dosage: ?          QUANTITY:2 CAPSULE(S);?
     Route: 048
     Dates: start: 20040530, end: 20190724
  4. FLUOXETINE [Suspect]
     Active Substance: FLUOXETINE HYDROCHLORIDE
     Indication: OBSESSIVE-COMPULSIVE DISORDER
     Dosage: ?          QUANTITY:2 CAPSULE(S);?
     Route: 048
     Dates: start: 20040530, end: 20190724
  5. BUPROPION. [Concomitant]
     Active Substance: BUPROPION
  6. MELATONIN [Concomitant]
     Active Substance: MELATONIN
  7. ABILIFY [Concomitant]
     Active Substance: ARIPIPRAZOLE
  8. GARLIQUE [Concomitant]
     Active Substance: GARLIC

REACTIONS (3)
  - Nightmare [None]
  - Head injury [None]
  - Fall [None]

NARRATIVE: CASE EVENT DATE: 20180810
